FAERS Safety Report 9617413 (Version 5)
Quarter: 2014Q4

REPORT INFORMATION
  Report Type: Report from Study
  Country: MX (occurrence: MX)
  Receive Date: 20131011
  Receipt Date: 20141001
  Transmission Date: 20150529
  Serious: Yes (Other)
  Sender: FDA-Public Use
  Company Number: PHHY2012MX073153

PATIENT
  Age: 75 Year
  Sex: Female
  Weight: 72 kg

DRUGS (11)
  1. ACLASTA [Suspect]
     Active Substance: ZOLEDRONIC ACID
     Indication: OSTEOPOROSIS
     Dosage: 5 MG/100ML, YEARLY
     Route: 042
     Dates: start: 200810
  2. FOSAMAX PLUS D [Concomitant]
     Active Substance: ALENDRONATE SODIUM\CHOLECALCIFEROL
     Dosage: 1 DF, EVERY 8 HOURS
     Route: 065
     Dates: start: 2013
  3. ANALGESICS [Concomitant]
     Active Substance: UNSPECIFIED INGREDIENT
     Indication: PAIN
     Dosage: UNK UKN, UNK
     Route: 065
  4. COLPOTROPHINE [Concomitant]
     Active Substance: PROMESTRIENE
     Indication: HORMONE LEVEL ABNORMAL
     Dosage: 2 DF, QW
     Route: 065
     Dates: start: 2012
  5. FOSAMAX PLUS D [Concomitant]
     Active Substance: ALENDRONATE SODIUM\CHOLECALCIFEROL
     Dosage: 1 DF, EVERY 8 HOURS
     Route: 065
     Dates: start: 2014
  6. ACLASTA [Suspect]
     Active Substance: ZOLEDRONIC ACID
     Dosage: 5 MG/100ML, YEARLY
     Route: 042
     Dates: start: 201007
  7. D-CAL [Concomitant]
     Active Substance: CALCIUM CARBONATE
     Indication: OSTEOPOROSIS
     Dosage: 1 DF, DAILY
     Route: 048
  8. DAFLON (DIOSMIN/HESPERIDIN) [Concomitant]
     Active Substance: DIOSMIN\HESPERIDIN
     Indication: VEIN DISORDER
     Dosage: 2 DF, DAILY
     Route: 065
     Dates: start: 2013
  9. ACLASTA [Suspect]
     Active Substance: ZOLEDRONIC ACID
     Dosage: 5 MG/100ML, YEARLY
     Route: 042
     Dates: start: 20121010
  10. DICAL [Concomitant]
     Indication: OSTEOPOROSIS
     Dosage: 1 DF, DAILY
     Route: 065
     Dates: start: 2000
  11. CYMBALTA [Concomitant]
     Active Substance: DULOXETINE HYDROCHLORIDE
     Indication: DEPRESSION
     Dosage: 1 DF, DAILY
     Route: 065
     Dates: start: 201409

REACTIONS (7)
  - Limb discomfort [Not Recovered/Not Resolved]
  - Pain in extremity [Not Recovered/Not Resolved]
  - Osteopenia [Not Recovered/Not Resolved]
  - Dyspepsia [Not Recovered/Not Resolved]
  - Upper limb fracture [Unknown]
  - Fall [Unknown]
  - Abdominal discomfort [Not Recovered/Not Resolved]

NARRATIVE: CASE EVENT DATE: 20121012
